FAERS Safety Report 7608512-4 (Version None)
Quarter: 2011Q3

REPORT INFORMATION
  Report Type: 
  Country: None (occurrence: None)
  Receive Date: 20110714
  Receipt Date: 20110712
  Transmission Date: 20111222
  Serious: Yes (Hospitalization)
  Sender: FDA-Public Use
  Company Number: US-BRISTOL-MYERS SQUIBB COMPANY-15705379

PATIENT
  Age: 63 Year
  Sex: Male

DRUGS (4)
  1. SERTRALINE [Concomitant]
  2. IPILIMUMAB [Suspect]
     Indication: MALIGNANT MELANOMA
     Dosage: INTER ON:05 JAN11.
     Route: 042
     Dates: start: 20100510
  3. LEVETIRACETAM [Concomitant]
  4. GABAPENTIN [Concomitant]

REACTIONS (2)
  - THROMBOCYTOPENIA [None]
  - CEREBELLAR HAEMATOMA [None]
